FAERS Safety Report 14122985 (Version 1)
Quarter: 2017Q4

REPORT INFORMATION
  Report Type: Spontaneous
  Country: US (occurrence: US)
  Receive Date: 20171024
  Receipt Date: 20171024
  Transmission Date: 20180321
  Serious: Yes (Hospitalization, Disabling)
  Sender: FDA-Public Use
  Company Number: None

PATIENT
  Age: 74 Year
  Sex: Female
  Weight: 75.6 kg

DRUGS (10)
  1. ASPIRIN. [Concomitant]
     Active Substance: ASPIRIN
  2. LEVAQUIN [Suspect]
     Active Substance: LEVOFLOXACIN
     Indication: PNEUMONIA
     Dates: start: 20140207, end: 20140210
  3. MULTI-VITAMIN [Concomitant]
     Active Substance: .ALPHA.-TOCOPHEROL ACETATE, DL-\ASCORBIC ACID\CYANOCOBALAMIN\FLUORIDE ION\FOLIC ACID\NIACIN\PYRIDOXINE\RIBOFLAVIN\THIAMINE\VITAMIN A\VITAMIN D
  4. CAFFEINE. [Concomitant]
     Active Substance: CAFFEINE
  5. LIDOCAINE. [Concomitant]
     Active Substance: LIDOCAINE
  6. BIOTIN [Concomitant]
     Active Substance: BIOTIN
  7. VITAMIN B12 [Concomitant]
     Active Substance: CYANOCOBALAMIN
  8. PERPHENAZINE. [Concomitant]
     Active Substance: PERPHENAZINE
  9. VITAMIN D3 [Concomitant]
     Active Substance: CHOLECALCIFEROL
  10. FOLIC ACID. [Concomitant]
     Active Substance: FOLIC ACID

REACTIONS (11)
  - Back pain [None]
  - Contrast media reaction [None]
  - Urticaria [None]
  - Herpes zoster [None]
  - Arthralgia [None]
  - Pain in extremity [None]
  - Documented hypersensitivity to administered product [None]
  - Tendon pain [None]
  - Neuropathy peripheral [None]
  - Pain [None]
  - Gait disturbance [None]

NARRATIVE: CASE EVENT DATE: 20140209
